FAERS Safety Report 7017735-7 (Version None)
Quarter: 2010Q3

REPORT INFORMATION
  Report Type: 
  Country: None (occurrence: None)
  Receive Date: 20100928
  Receipt Date: 20100916
  Transmission Date: 20110219
  Serious: Yes (Other)
  Sender: FDA-Public Use
  Company Number: CA-JNJFOC-20100906099

PATIENT
  Sex: Male
  Weight: 74.84 kg

DRUGS (4)
  1. REMICADE [Suspect]
     Indication: PRODUCT USED FOR UNKNOWN INDICATION
     Route: 042
  2. BENADRYL [Concomitant]
     Route: 042
  3. TYLENOL [Concomitant]
     Route: 048
  4. SOLU-CORTEF [Concomitant]
     Route: 042

REACTIONS (6)
  - ABDOMINAL PAIN [None]
  - ABSCESS [None]
  - BACK PAIN [None]
  - CONDITION AGGRAVATED [None]
  - DIARRHOEA [None]
  - FATIGUE [None]
